FAERS Safety Report 9494643 (Version 1)
Quarter: 2013Q3

REPORT INFORMATION
  Report Type: Spontaneous
  Country: BR (occurrence: BR)
  Receive Date: 20130903
  Receipt Date: 20130903
  Transmission Date: 20140515
  Serious: Yes (Other)
  Sender: FDA-Public Use
  Company Number: BR-ELI_LILLY_AND_COMPANY-BR201308008619

PATIENT
  Age: 29 Year
  Sex: Female
  Weight: 49 kg

DRUGS (12)
  1. HUMULIN R [Suspect]
     Indication: TYPE 1 DIABETES MELLITUS
     Dosage: 10 IU, QD
     Route: 058
     Dates: start: 201102, end: 201208
  2. HUMULIN R [Suspect]
     Dosage: 10 IU, QD
     Route: 058
     Dates: start: 201301
  3. HUMULIN N [Suspect]
     Indication: TYPE 1 DIABETES MELLITUS
     Dosage: 50 IU, QD
     Route: 058
     Dates: start: 201102, end: 201208
  4. HUMULIN N [Suspect]
     Dosage: 60 IU, QD
     Route: 058
     Dates: start: 201102, end: 201208
  5. HUMULIN N [Suspect]
     Dosage: 50 IU, QD
     Route: 058
     Dates: start: 201301
  6. HUMULIN N [Suspect]
     Dosage: 60 IU, QD
     Route: 058
     Dates: start: 201301
  7. AZITROMICINA [Concomitant]
     Indication: URINARY TRACT INFECTION
     Dosage: 5 ML, QD
     Route: 065
  8. PURAN T4 [Concomitant]
     Indication: HYPOTHYROIDISM
     Dosage: 150 UG, QD
     Route: 065
  9. DUOVENT [Concomitant]
     Indication: BRONCHIECTASIS
     Dosage: UNK, UNKNOWN
     Route: 065
  10. ALENIA [Concomitant]
     Indication: BRONCHIECTASIS
     Dosage: UNK, UNKNOWN
     Route: 065
  11. BAMIFIX [Concomitant]
     Indication: BRONCHIECTASIS
     Dosage: UNK, UNKNOWN
     Route: 065
  12. MONTELAIR [Concomitant]
     Indication: BRONCHIECTASIS
     Dosage: 10 MG, UNKNOWN
     Route: 065

REACTIONS (5)
  - Blood glucose increased [Recovered/Resolved]
  - Haemorrhagic cyst [Unknown]
  - Feeling abnormal [Recovered/Resolved]
  - Urinary tract infection [Unknown]
  - Drug ineffective [Unknown]
